FAERS Safety Report 5261448-9 (Version None)
Quarter: 2007Q1

REPORT INFORMATION
  Report Type: 
  Country: None (occurrence: None)
  Receive Date: 20070307
  Receipt Date: 20070219
  Transmission Date: 20070707
  Serious: Yes (Other)
  Sender: FDA-Public Use
  Company Number: 8022283

PATIENT
  Age: 10 Year
  Sex: Male
  Weight: 37 kg

DRUGS (5)
  1. EQUASYM [Suspect]
     Indication: ATTENTION DEFICIT/HYPERACTIVITY DISORDER
     Dosage: NI PO
     Route: 048
     Dates: start: 20060727, end: 20060810
  2. MELATONIN [Concomitant]
  3. METHYLPHENIDATE HCL [Concomitant]
  4. OLANZAPINE [Concomitant]
  5. OMEGA 3 FISH OIL [Concomitant]

REACTIONS (3)
  - CHEST PAIN [None]
  - DYSPEPSIA [None]
  - PALPITATIONS [None]
